FAERS Safety Report 16744366 (Version 1)
Quarter: 2019Q3

REPORT INFORMATION
  Report Type: Other
  Country: DE (occurrence: DE)
  Receive Date: 20190827
  Receipt Date: 20190827
  Transmission Date: 20191005
  Serious: Yes (Other)
  Sender: FDA-Public Use
  Company Number: DE-LUPIN PHARMACEUTICALS INC.-2019-05408

PATIENT
  Age: 7 Month
  Sex: Male
  Weight: 1.92 kg

DRUGS (11)
  1. LEVETIRACETAM. [Suspect]
     Active Substance: LEVETIRACETAM
     Indication: EPILEPSY
     Dosage: 750 MILLIGRAM, BID
     Route: 064
     Dates: start: 20141127, end: 2014
  2. PREGABALIN. [Concomitant]
     Active Substance: PREGABALIN
     Dosage: UNK, TOTAL: 750 (150-150-150-300)
     Route: 064
     Dates: start: 20141216, end: 20150627
  3. PREGABALIN. [Concomitant]
     Active Substance: PREGABALIN
     Indication: PRODUCT USED FOR UNKNOWN INDICATION
     Dosage: UNK, TOTAL: 750  (150-300-300)
     Route: 064
     Dates: end: 20141215
  4. PREGABALIN. [Concomitant]
     Active Substance: PREGABALIN
     Dosage: UNK, TOTAL: 750 (150-150-150-300)
     Route: 063
     Dates: start: 2015
  5. LEVETIRACETAM. [Suspect]
     Active Substance: LEVETIRACETAM
     Dosage: UNK, DOSE INCREASE
     Route: 064
     Dates: start: 2014, end: 2014
  6. LEVETIRACETAM. [Suspect]
     Active Substance: LEVETIRACETAM
     Dosage: UNK UNK, QID, 1000-1000-500-1000
     Route: 064
     Dates: start: 20141216, end: 20150627
  7. LACOSAMIDE. [Suspect]
     Active Substance: LACOSAMIDE
     Indication: EPILEPSY
     Dosage: 100 MILLIGRAM, BID
     Route: 064
     Dates: start: 20141127, end: 2014
  8. LEVETIRACETAM. [Suspect]
     Active Substance: LEVETIRACETAM
     Dosage: UNK
     Route: 063
     Dates: start: 2015
  9. LACOSAMIDE. [Suspect]
     Active Substance: LACOSAMIDE
     Dosage: 100 MG, ONCE DAILY (QD)
     Route: 064
     Dates: start: 2014, end: 20141215
  10. LACOSAMIDE. [Suspect]
     Active Substance: LACOSAMIDE
     Dosage: 50 MILLIGRAM, BID, 50-0-50
     Route: 064
     Dates: start: 20141216, end: 20141218
  11. LEVETIRACETAM. [Suspect]
     Active Substance: LEVETIRACETAM
     Dosage: 1500 MILLIGRAM, BID
     Route: 064
     Dates: start: 20141215, end: 20141215

REACTIONS (4)
  - Exposure via breast milk [Unknown]
  - Low birth weight baby [Unknown]
  - Premature baby [Unknown]
  - Foetal exposure during pregnancy [Unknown]

NARRATIVE: CASE EVENT DATE: 20141127
